FAERS Safety Report 25776952 (Version 1)
Quarter: 2025Q3

REPORT INFORMATION
  Report Type: Spontaneous
  Country: US (occurrence: US)
  Receive Date: 20250909
  Receipt Date: 20250909
  Transmission Date: 20251021
  Serious: No
  Sender: DOMPE FARMACEUTICI
  Company Number: US-FARMAPROD-202409-3300

PATIENT
  Age: 77 Year
  Sex: Male

DRUGS (5)
  1. OXERVATE [Suspect]
     Active Substance: CENEGERMIN-BKBJ
     Indication: Neurotrophic keratopathy
     Route: 047
     Dates: start: 20240905
  2. OXERVATE [Suspect]
     Active Substance: CENEGERMIN-BKBJ
  3. MELOXICAM [Concomitant]
     Active Substance: MELOXICAM
  4. LISINOPRIL [Concomitant]
     Active Substance: LISINOPRIL
  5. AMLODIPINE BESYLATE [Concomitant]
     Active Substance: AMLODIPINE BESYLATE

REACTIONS (6)
  - Product dose omission issue [Unknown]
  - Vision blurred [Recovering/Resolving]
  - Chest discomfort [Unknown]
  - Ocular hyperaemia [Unknown]
  - Rash [Unknown]
  - Eye pain [Unknown]

NARRATIVE: CASE EVENT DATE: 20241014
